FAERS Safety Report 21649006 (Version 1)
Quarter: 2022Q4

REPORT INFORMATION
  Report Type: Spontaneous
  Country: US (occurrence: None)
  Receive Date: 20221123
  Receipt Date: 20221123
  Transmission Date: 20230113
  Serious: Yes (Other)
  Sender: FDA-Public Use
  Company Number: None

PATIENT
  Sex: Male
  Weight: 75.48 kg

DRUGS (1)
  1. EPCLUSA [Suspect]
     Active Substance: SOFOSBUVIR\VELPATASVIR
     Indication: Hepatitis C
     Dosage: 400-100 MG  TABLET DAILY ORAL? ?
     Route: 048
     Dates: start: 20221101, end: 20221117

REACTIONS (1)
  - Headache [None]

NARRATIVE: CASE EVENT DATE: 20221118
